FAERS Safety Report 12444942 (Version 2)
Quarter: 2016Q2

REPORT INFORMATION
  Report Type: Spontaneous
  Country: SE (occurrence: SE)
  Receive Date: 20160531
  Receipt Date: 20160531
  Transmission Date: 20160815
  Serious: Yes (Other)
  Sender: FDA-Public Use
  Company Number: SE-TEVA-663177ISR

PATIENT

DRUGS (6)
  1. ROPIVACAINE [Suspect]
     Active Substance: ROPIVACAINE
     Route: 064
  2. PHENYLEPHRINE [Concomitant]
     Active Substance: PHENYLEPHRINE\PHENYLEPHRINE HYDROCHLORIDE
     Route: 064
  3. MISOPROSTOL. [Concomitant]
     Active Substance: MISOPROSTOL
     Route: 064
  4. OXYTOCIN. [Concomitant]
     Active Substance: OXYTOCIN
     Route: 064
  5. FENTANYL. [Suspect]
     Active Substance: FENTANYL
     Route: 064
  6. DINOPROSTONE. [Concomitant]
     Active Substance: DINOPROSTONE
     Route: 064

REACTIONS (2)
  - Foetal exposure during pregnancy [Recovered/Resolved]
  - Apgar score low [Recovered/Resolved]
